FAERS Safety Report 17144813 (Version 1)
Quarter: 2019Q4

REPORT INFORMATION
  Report Type: Other
  Country: FR (occurrence: FR)
  Receive Date: 20191212
  Receipt Date: 20191212
  Transmission Date: 20200122
  Serious: Yes (Other)
  Sender: FDA-Public Use
  Company Number: FR-HARMONY BIOSCIENCES-2019HMY00057

PATIENT
  Age: 27 Year
  Sex: Female
  Weight: 62 kg

DRUGS (1)
  1. WAKIX [Suspect]
     Active Substance: PITOLISANT HYDROCHLORIDE
     Indication: HYPERSOMNIA
     Dosage: 2 DOSAGE UNITS, 1X/DAY
     Route: 048
     Dates: start: 20190617

REACTIONS (3)
  - Onychoclasis [Not Recovered/Not Resolved]
  - Trichorrhexis [Not Recovered/Not Resolved]
  - Back pain [Not Recovered/Not Resolved]

NARRATIVE: CASE EVENT DATE: 2019
